FAERS Safety Report 7207252-3 (Version None)
Quarter: 2010Q4

REPORT INFORMATION
  Report Type: 
  Country: None (occurrence: None)
  Receive Date: 20101230
  Receipt Date: 20101230
  Transmission Date: 20110411
  Serious: Yes (Hospitalization, Congenital Anomaly)
  Sender: FDA-Public Use
  Company Number: None

PATIENT
  Sex: Female

DRUGS (1)
  1. BENDECTIN [Suspect]
     Indication: VOMITING IN PREGNANCY

REACTIONS (5)
  - ADRENAL INSUFFICIENCY [None]
  - ASTHMA [None]
  - BRONCHIECTASIS [None]
  - LIMB REDUCTION DEFECT [None]
  - MATERNAL DRUGS AFFECTING FOETUS [None]
